FAERS Safety Report 4721452-3 (Version None)
Quarter: 2005Q3

REPORT INFORMATION
  Report Type: 
  Country: None (occurrence: None)
  Receive Date: 20050721
  Receipt Date: 20040914
  Transmission Date: 20060218
  Serious: Yes (Hospitalization)
  Sender: FDA-Public Use
  Company Number: US-BRISTOL-MYERS SQUIBB COMPANY-12701298

PATIENT
  Sex: Male

DRUGS (5)
  1. COUMADIN [Suspect]
     Dosage: 1MG ON M,W,+F; 1.5 MG ON T,R,SAT+SUN=9MG/WK; TEMP STOPPED LAST YR AND THIS YR FOR 2 DAYS
     Route: 048
  2. ATENOLOL [Concomitant]
  3. LIPITOR [Concomitant]
  4. FLOMAX [Concomitant]
  5. FOLIC ACID [Concomitant]

REACTIONS (2)
  - EPISTAXIS [None]
  - INTERNATIONAL NORMALISED RATIO INCREASED [None]
